FAERS Safety Report 9674934 (Version 1)
Quarter: 2013Q4

REPORT INFORMATION
  Report Type: Spontaneous
  Country: US (occurrence: US)
  Receive Date: 20131107
  Receipt Date: 20131107
  Transmission Date: 20140711
  Serious: Yes (Hospitalization)
  Sender: FDA-Public Use
  Company Number: US-JNJFOC-20131019352

PATIENT
  Age: 23 Year
  Sex: Male

DRUGS (4)
  1. TOPAMAX [Suspect]
     Indication: CONVULSION
     Route: 048
     Dates: start: 20131028
  2. TOPAMAX [Suspect]
     Indication: CONVULSION
     Route: 048
  3. TOPAMAX [Suspect]
     Indication: PRODUCT USED FOR UNKNOWN INDICATION
     Route: 048
     Dates: start: 20131028
  4. TOPAMAX [Suspect]
     Indication: PRODUCT USED FOR UNKNOWN INDICATION
     Route: 048

REACTIONS (2)
  - Schizoaffective disorder [Not Recovered/Not Resolved]
  - Adverse event [Unknown]
